FAERS Safety Report 6903370-5 (Version None)
Quarter: 2010Q3

REPORT INFORMATION
  Report Type: 
  Country: None (occurrence: None)
  Receive Date: 20100803
  Receipt Date: 20080924
  Transmission Date: 20110219
  Serious: Yes (Other)
  Sender: FDA-Public Use
  Company Number: US-PFIZER INC-2008080758

PATIENT
  Sex: Female

DRUGS (2)
  1. LYRICA [Suspect]
     Indication: TRIGEMINAL NEURALGIA
  2. GABAPENTIN [Concomitant]

REACTIONS (2)
  - CARDIAC FAILURE [None]
  - OEDEMA PERIPHERAL [None]
